FAERS Safety Report 9352996 (Version 1)
Quarter: 2013Q2

REPORT INFORMATION
  Report Type: Spontaneous
  Country: US (occurrence: US)
  Receive Date: 20130618
  Receipt Date: 20130618
  Transmission Date: 20140414
  Serious: No
  Sender: FDA-Public Use
  Company Number: US-009507513-1306USA007787

PATIENT
  Sex: 0

DRUGS (1)
  1. ZOCOR [Suspect]
     Dosage: UNK

REACTIONS (1)
  - Intraocular pressure increased [Unknown]
